FAERS Safety Report 20101064 (Version 8)
Quarter: 2023Q2

REPORT INFORMATION
  Report Type: Spontaneous
  Country: PT (occurrence: PT)
  Receive Date: 20211123
  Receipt Date: 20230401
  Transmission Date: 20230721
  Serious: Yes (Life-Threatening, Hospitalization, Disabling, Other)
  Sender: FDA-Public Use
  Company Number: PT-AUROBINDO-AUR-APL-2021-045728

PATIENT
  Age: 84 Year
  Sex: Female

DRUGS (2)
  1. CIPROFLOXACIN [Suspect]
     Active Substance: CIPROFLOXACIN
     Indication: Urinary tract infection
     Dosage: UNK(500 MG, COMPRIME PELLICULE )
     Route: 048
  2. SULFAMETHOXAZOLE\TRIMETHOPRIM [Suspect]
     Active Substance: SULFAMETHOXAZOLE\TRIMETHOPRIM
     Indication: Urinary tract infection
     Dosage: UNK
     Route: 048

REACTIONS (9)
  - Symmetrical drug-related intertriginous and flexural exanthema [Recovering/Resolving]
  - Generalised oedema [Recovered/Resolved]
  - Rash [Recovered/Resolved]
  - Toxic skin eruption [Unknown]
  - Skin lesion [Recovered/Resolved]
  - Dermatitis exfoliative [Recovered/Resolved]
  - Face oedema [Recovered/Resolved]
  - Dermatitis allergic [Recovered/Resolved]
  - Oedema [Recovered/Resolved]
